FAERS Safety Report 4724449-2 (Version None)
Quarter: 2005Q3

REPORT INFORMATION
  Report Type: 
  Country: None (occurrence: None)
  Receive Date: 20050722
  Receipt Date: 20050722
  Transmission Date: 20060218
  Serious: Yes (Hospitalization, Other)
  Sender: FDA-Public Use
  Company Number: None

PATIENT
  Sex: Female
  Weight: 42.2 kg

DRUGS (1)
  1. CISPLATIN [Suspect]
     Indication: NEOPLASM MALIGNANT
     Dosage: SEE IMAGE
     Dates: start: 20050407, end: 20050407

REACTIONS (7)
  - ANAEMIA [None]
  - DYSPNOEA [None]
  - HEADACHE [None]
  - HYPOKALAEMIA [None]
  - HYPOTENSION [None]
  - SEPTIC SHOCK [None]
  - UPPER RESPIRATORY TRACT INFECTION [None]
